FAERS Safety Report 6491128-3 (Version None)
Quarter: 2009Q4

REPORT INFORMATION
  Report Type: 
  Country: None (occurrence: None)
  Receive Date: 20091208
  Receipt Date: 20091124
  Transmission Date: 20100525
  Serious: Yes (Hospitalization)
  Sender: FDA-Public Use
  Company Number: 2009AC000433

PATIENT
  Age: 63 Year
  Sex: Male

DRUGS (13)
  1. DIGOXIN [Suspect]
     Dosage: 0.25 MG;QD;PO
     Route: 048
  2. AMARYL [Concomitant]
  3. TIAZAC [Concomitant]
  4. ZESTRIL [Concomitant]
  5. K-DUR [Concomitant]
  6. LASIX [Concomitant]
  7. SORINE [Concomitant]
  8. SYNTHROID [Concomitant]
  9. CORTEF [Concomitant]
  10. TESTIM [Concomitant]
  11. COUMADIN [Concomitant]
  12. CARTIA XT [Concomitant]
  13. POTASSIUM [Concomitant]

REACTIONS (7)
  - ATRIAL FIBRILLATION [None]
  - BRAIN NEOPLASM [None]
  - COGNITIVE DISORDER [None]
  - HAEMANGIOMA [None]
  - MOLE EXCISION [None]
  - RASH [None]
  - SEBORRHOEIC KERATOSIS [None]
